FAERS Safety Report 5089109-X (Version None)
Quarter: 2006Q3

REPORT INFORMATION
  Report Type: 
  Country: None (occurrence: None)
  Receive Date: 20060727
  Receipt Date: 20060627
  Transmission Date: 20061208
  Serious: Yes (Other)
  Sender: FDA-Public Use
  Company Number: 2006082593

PATIENT
  Age: 45 Year
  Sex: Male
  Weight: 72.5755 kg

DRUGS (3)
  1. LYRICA [Suspect]
     Indication: FIBROMYALGIA
     Dosage: 75 MG (75 MG, 1 IN 1 D), UNKNOWN
     Dates: start: 20060101
  2. LORCET-HD [Concomitant]
  3. LORAZEPAM [Concomitant]

REACTIONS (5)
  - FEELING ABNORMAL [None]
  - FIBROMYALGIA [None]
  - NERVOUSNESS [None]
  - NEURALGIA [None]
  - THERAPEUTIC RESPONSE DECREASED [None]
